FAERS Safety Report 19122926 (Version 1)
Quarter: 2021Q2

REPORT INFORMATION
  Report Type: Spontaneous
  Country: NO (occurrence: NO)
  Receive Date: 20210412
  Receipt Date: 20210412
  Transmission Date: 20210717
  Serious: Yes (Hospitalization, Other)
  Sender: FDA-Public Use
  Company Number: NO-SA-2021SA110006

PATIENT
  Age: 62 Year
  Sex: Female

DRUGS (5)
  1. EMCONCOR CHF [Concomitant]
     Active Substance: BISOPROLOL FUMARATE
     Indication: HYPERTENSION
     Dosage: 2.5 MG
     Route: 048
  2. MULTAQ [Suspect]
     Active Substance: DRONEDARONE
     Indication: ATRIAL FIBRILLATION
     Dosage: 400 MG, Q12H
     Route: 048
     Dates: start: 20210211, end: 20210311
  3. NORETHISTERONE ACETATE [Concomitant]
     Active Substance: NORETHINDRONE ACETATE
     Indication: HORMONE REPLACEMENT THERAPY
     Dosage: 1 DF
     Route: 048
  4. SOMAC [Concomitant]
     Active Substance: PANTOPRAZOLE SODIUM
     Indication: DYSPEPSIA
     Dosage: 20 MG
     Route: 048
  5. GLUCOSAMIN ORIFARM [Concomitant]
     Indication: OSTEOARTHRITIS
     Dosage: 1200 MG
     Route: 048

REACTIONS (1)
  - Giant cell arteritis [Recovering/Resolving]
